FAERS Safety Report 7328223-2 (Version None)
Quarter: 2011Q1

REPORT INFORMATION
  Report Type: 
  Country: None (occurrence: None)
  Receive Date: 20110224
  Receipt Date: 20110224
  Transmission Date: 20110831
  Serious: Yes (Other)
  Sender: FDA-Public Use
  Company Number: None

PATIENT
  Age: 49 Year
  Sex: Male
  Weight: 103.4201 kg

DRUGS (1)
  1. CARVEDILOL [Suspect]
     Indication: CARDIOMYOPATHY
     Dosage: 12.5 MG PO BID
     Route: 048
     Dates: start: 20070101

REACTIONS (3)
  - DRUG INTOLERANCE [None]
  - PRODUCT SUBSTITUTION ISSUE [None]
  - FATIGUE [None]
